FAERS Safety Report 12464305 (Version 1)
Quarter: 2016Q2

REPORT INFORMATION
  Report Type: Spontaneous
  Country: US (occurrence: US)
  Receive Date: 20160614
  Receipt Date: 20160614
  Transmission Date: 20160815
  Serious: Yes (Hospitalization)
  Sender: FDA-Public Use
  Company Number: US-ASTRAZENECA-2016SE61074

PATIENT
  Sex: Female
  Weight: 42.2 kg

DRUGS (3)
  1. DULERA [Concomitant]
     Active Substance: FORMOTEROL FUMARATE DIHYDRATE\MOMETASONE FUROATE
     Indication: CHRONIC OBSTRUCTIVE PULMONARY DISEASE
     Dosage: TWO TIMES A DAY
     Route: 055
  2. OXYGEN. [Concomitant]
     Active Substance: OXYGEN
     Dosage: 3 L/MIN
     Route: 045
  3. TUDORZA PRESSAIR [Suspect]
     Active Substance: ACLIDINIUM BROMIDE
     Indication: CHRONIC OBSTRUCTIVE PULMONARY DISEASE
     Dosage: 1 PUFF TWO TIMES A DAY
     Route: 055
     Dates: start: 2013

REACTIONS (7)
  - Lung disorder [Unknown]
  - Drug dose omission [Not Recovered/Not Resolved]
  - Transient ischaemic attack [Unknown]
  - Dyspnoea [Not Recovered/Not Resolved]
  - Device defective [Unknown]
  - Mass [Unknown]
  - Blood urine present [Unknown]

NARRATIVE: CASE EVENT DATE: 20160603
